FAERS Safety Report 6242287-9 (Version None)
Quarter: 2009Q2

REPORT INFORMATION
  Report Type: 
  Country: None (occurrence: None)
  Receive Date: 20090624
  Receipt Date: 20090618
  Transmission Date: 20091009
  Serious: Yes (Hospitalization)
  Sender: FDA-Public Use
  Company Number: US-BIOGENIDEC-2007BI007947

PATIENT
  Age: 50 Year
  Sex: Male
  Weight: 72 kg

DRUGS (2)
  1. AVONEX [Suspect]
     Indication: MULTIPLE SCLEROSIS
     Route: 030
     Dates: start: 20060701, end: 20070328
  2. AVONEX [Suspect]
     Route: 030
     Dates: start: 20070526

REACTIONS (3)
  - ARTERIOSCLEROSIS [None]
  - CEREBROVASCULAR ACCIDENT [None]
  - HIGH DENSITY LIPOPROTEIN DECREASED [None]
